FAERS Safety Report 10328643 (Version 1)
Quarter: 2014Q3

REPORT INFORMATION
  Report Type: Spontaneous
  Country: US (occurrence: None)
  Receive Date: 20140716
  Receipt Date: 20140716
  Transmission Date: 20150326
  Serious: Yes (Hospitalization)
  Sender: FDA-Public Use
  Company Number: None

PATIENT
  Age: 70 Year
  Sex: Male
  Weight: 50.5 kg

DRUGS (1)
  1. FENTANYL. [Suspect]
     Active Substance: FENTANYL
     Indication: PAIN
     Route: 042
     Dates: start: 20130228, end: 20130228

REACTIONS (5)
  - Mental status changes [None]
  - Cerebrovascular accident [None]
  - Staring [None]
  - VIIth nerve paralysis [None]
  - Asthenia [None]

NARRATIVE: CASE EVENT DATE: 20130228
